FAERS Safety Report 7271918-X (Version None)
Quarter: 2011Q1

REPORT INFORMATION
  Report Type: 
  Country: None (occurrence: None)
  Receive Date: 20110203
  Receipt Date: 20110127
  Transmission Date: 20110831
  Serious: Yes (Other)
  Sender: FDA-Public Use
  Company Number: JP-PFIZER INC-2010156473

PATIENT
  Age: 61 Year
  Sex: Female
  Weight: 44.2 kg

DRUGS (11)
  1. MAGNESIUM OXIDE [Concomitant]
     Dosage: 2 G/DAY
     Route: 048
  2. CLARITH [Concomitant]
     Dosage: 400 MG/DAY
     Route: 048
  3. SALAGEN [Concomitant]
     Dosage: 5 MG/DAY
     Route: 048
  4. ARTIST [Concomitant]
     Dosage: 2.5 MG/DAY
     Route: 048
  5. SOLANAX [Concomitant]
     Dosage: 1.2 MG/DAY
     Route: 048
  6. PREMARIN [Suspect]
     Indication: MENOPAUSAL SYMPTOMS
     Dosage: 0.625 MG, 1X/DAY
     Route: 048
     Dates: start: 20050516, end: 20100311
  7. PROMAC /JPN/ [Concomitant]
     Dosage: 75 MG/DAY
     Route: 048
  8. KETOPROFEN [Concomitant]
  9. ACINON [Concomitant]
     Dosage: 150 MG/DAY
     Route: 048
  10. PREDONINE [Concomitant]
     Dosage: 20 MG/DAY
     Route: 048
  11. BLOPRESS [Concomitant]
     Dosage: 4 MG/DAY
     Route: 048

REACTIONS (2)
  - PORPHYRIA NON-ACUTE [None]
  - HEPATIC STEATOSIS [None]
